FAERS Safety Report 23517737 (Version 4)
Quarter: 2024Q4

REPORT INFORMATION
  Report Type: Other
  Country: US (occurrence: US)
  Receive Date: 20240213
  Receipt Date: 20241025
  Transmission Date: 20250115
  Serious: Yes (Hospitalization, Other)
  Sender: TRAVERE THERAPEUTICS
  Company Number: US-TRAVERE-2024TVT00133

PATIENT
  Age: 60 Year
  Sex: Female

DRUGS (2)
  1. FILSPARI [Suspect]
     Active Substance: SPARSENTAN
     Indication: IgA nephropathy
     Route: 048
     Dates: start: 20240206
  2. FILSPARI [Suspect]
     Active Substance: SPARSENTAN
     Indication: Haematuria
     Route: 048
     Dates: start: 202404

REACTIONS (6)
  - Pulmonary oedema [Unknown]
  - Nephrolithiasis [Unknown]
  - Gastric ulcer [Unknown]
  - Hospitalisation [Unknown]
  - Back pain [Unknown]
  - Urinary tract infection [Unknown]

NARRATIVE: CASE EVENT DATE: 20240228
